FAERS Safety Report 12215985 (Version 2)
Quarter: 2016Q1

REPORT INFORMATION
  Report Type: Other
  Country: GR (occurrence: GR)
  Receive Date: 20160328
  Receipt Date: 20160328
  Transmission Date: 20160526
  Serious: Yes (Hospitalization, Other)
  Sender: FDA-Public Use
  Company Number: GR-LUPIN PHARMACEUTICALS INC.-2016-01008

PATIENT
  Age: 48 Year
  Sex: Female

DRUGS (1)
  1. LAMOTRIGINE. [Suspect]
     Active Substance: LAMOTRIGINE
     Indication: BIPOLAR DISORDER
     Route: 048

REACTIONS (3)
  - Suicide attempt [Unknown]
  - Overdose [Unknown]
  - Rhabdomyolysis [Recovered/Resolved]
